FAERS Safety Report 11819802 (Version 1)
Quarter: 2015Q4

REPORT INFORMATION
  Report Type: Spontaneous
  Country: US (occurrence: US)
  Receive Date: 20151210
  Receipt Date: 20151210
  Transmission Date: 20160305
  Serious: No
  Sender: FDA-Public Use
  Company Number: US-JNJFOC-20150823523

PATIENT
  Sex: Female

DRUGS (1)
  1. RISPERIDAL [Suspect]
     Active Substance: RISPERIDONE
     Indication: ANXIETY
     Route: 048

REACTIONS (9)
  - Off label use [Unknown]
  - Decreased appetite [Unknown]
  - Confusional state [Unknown]
  - Emotional disorder [Unknown]
  - Nervousness [Unknown]
  - Product use issue [Unknown]
  - Pruritus [Unknown]
  - Hypersensitivity [Unknown]
  - Feeling abnormal [Unknown]
